FAERS Safety Report 7048346-5 (Version None)
Quarter: 2010Q4

REPORT INFORMATION
  Report Type: 
  Country: None (occurrence: None)
  Receive Date: 20101015
  Receipt Date: 20101007
  Transmission Date: 20110411
  Serious: Yes (Life-Threatening, Hospitalization)
  Sender: FDA-Public Use
  Company Number: JP-ROCHE-724893

PATIENT
  Sex: Female
  Weight: 59 kg

DRUGS (6)
  1. XELODA [Suspect]
     Indication: LARGE INTESTINE CARCINOMA
     Dosage: DRUG: XELODA 300.
     Route: 048
     Dates: start: 20100826, end: 20100830
  2. AVASTIN [Suspect]
     Indication: COLON CANCER METASTATIC
     Route: 041
     Dates: start: 20100826, end: 20100826
  3. ELPLAT [Concomitant]
     Route: 041
     Dates: start: 20100826, end: 20100826
  4. BLOPRESS [Concomitant]
     Route: 048
  5. ATELEC [Concomitant]
     Route: 048
  6. MEVALOTIN [Concomitant]
     Dosage: FORM: PERORAL AGENT.
     Route: 048
     Dates: end: 20100106

REACTIONS (3)
  - DIARRHOEA [None]
  - RENAL FAILURE ACUTE [None]
  - VOMITING [None]
